FAERS Safety Report 13561782 (Version 1)
Quarter: 2017Q2

REPORT INFORMATION
  Report Type: Spontaneous
  Country: US (occurrence: US)
  Receive Date: 20170518
  Receipt Date: 20170518
  Transmission Date: 20170830
  Serious: Yes (Other)
  Sender: FDA-Public Use
  Company Number: None

PATIENT
  Age: 75 Year
  Sex: Male
  Weight: 128 kg

DRUGS (1)
  1. VANCOMYCIN [Suspect]
     Active Substance: VANCOMYCIN
     Dosage: 1 G PREOP INTRAVENOUS DRIP
     Route: 041
     Dates: start: 20170517, end: 20170517

REACTIONS (1)
  - Nausea [None]

NARRATIVE: CASE EVENT DATE: 20170517
